FAERS Safety Report 4975094-5 (Version None)
Quarter: 2006Q2

REPORT INFORMATION
  Report Type: 
  Country: None (occurrence: None)
  Receive Date: 20060414
  Receipt Date: 20060414
  Transmission Date: 20061013
  Serious: Yes (Other)
  Sender: FDA-Public Use
  Company Number: None

PATIENT
  Sex: Female

DRUGS (1)
  1. METHLYCELLULOSE CAPLET (METHYLCELLULOSE) [Suspect]
     Dosage: ORAL
     Route: 048

REACTIONS (4)
  - LOSS OF CONSCIOUSNESS [None]
  - MUSCLE DISORDER [None]
  - OESOPHAGEAL DISORDER [None]
  - PALPITATIONS [None]
